FAERS Safety Report 14568037 (Version 3)
Quarter: 2018Q1

REPORT INFORMATION
  Report Type: Spontaneous
  Country: US (occurrence: US)
  Receive Date: 20180223
  Receipt Date: 20180323
  Transmission Date: 20180509
  Serious: Yes (Hospitalization, Other)
  Sender: FDA-Public Use
  Company Number: US-CIPLA LTD.-2018US08936

PATIENT

DRUGS (6)
  1. METOPROLOL. [Concomitant]
     Active Substance: METOPROLOL
     Indication: HYPERTENSION
     Dosage: 12.5 MG, HALF TABLET BID
     Route: 065
     Dates: start: 201712
  2. SEVELAMER [Concomitant]
     Active Substance: SEVELAMER
     Indication: DIALYSIS
     Dosage: 800 MG, 9 TABLETS A DAY (3 TABLETS MORNING, AFTERNOON AND NIGHT)
     Route: 065
     Dates: start: 201712
  3. RENO                               /00049401/ [Concomitant]
     Indication: RENAL DISORDER
     Dosage: UNK, QD
     Route: 065
     Dates: start: 201711
  4. SODIUM BESYLATE [Concomitant]
     Indication: PRODUCT USED FOR UNKNOWN INDICATION
     Dosage: UNK
     Route: 065
  5. GABAPENTIN. [Suspect]
     Active Substance: GABAPENTIN
     Indication: PAIN IN EXTREMITY
     Dosage: 300 MG, QD, 1HR BEFORE GOING TO BED
     Route: 048
     Dates: start: 201706, end: 201711
  6. SUPER B COMPLEX WITH VITAMIN C [Concomitant]
     Indication: THYROID DISORDER
     Dosage: 100 MG, QID
     Route: 065
     Dates: start: 201712

REACTIONS (5)
  - Thyroid disorder [Recovered/Resolved]
  - Limb discomfort [Recovered/Resolved]
  - Peripheral swelling [Recovered/Resolved]
  - Renal disorder [Not Recovered/Not Resolved]
  - Burning sensation [Recovered/Resolved]

NARRATIVE: CASE EVENT DATE: 201708
